FAERS Safety Report 14390018 (Version 3)
Quarter: 2018Q2

REPORT INFORMATION
  Report Type: Spontaneous
  Country: US (occurrence: US)
  Receive Date: 20180115
  Receipt Date: 20180406
  Transmission Date: 20180711
  Serious: Yes (Life-Threatening, Other)
  Sender: FDA-Public Use
  Company Number: US-MYLANLABS-2017M1074943

PATIENT
  Sex: Female

DRUGS (3)
  1. METFORMIN [Concomitant]
     Active Substance: METFORMIN HYDROCHLORIDE
  2. CLOMIPRAMINE HYDROCHLORIDE CAPSULES, USP [Suspect]
     Active Substance: CLOMIPRAMINE HYDROCHLORIDE
     Dosage: 300 MG, QD
     Route: 048
     Dates: start: 201709, end: 201712
  3. CLOMIPRAMINE HYDROCHLORIDE CAPSULES, USP [Suspect]
     Active Substance: CLOMIPRAMINE HYDROCHLORIDE
     Indication: OBSESSIVE-COMPULSIVE DISORDER
     Dosage: 150 MG, HS
     Route: 048
     Dates: start: 20170801, end: 2017

REACTIONS (20)
  - General physical health deterioration [Not Recovered/Not Resolved]
  - Emotional disorder [Not Recovered/Not Resolved]
  - Blood glucose increased [Unknown]
  - Crying [Recovered/Resolved]
  - Abnormal dreams [Not Recovered/Not Resolved]
  - Dry mouth [Not Recovered/Not Resolved]
  - Constipation [Not Recovered/Not Resolved]
  - Hypertension [Recovered/Resolved]
  - Heart rate increased [Recovered/Resolved]
  - Nausea [Not Recovered/Not Resolved]
  - Decreased appetite [Not Recovered/Not Resolved]
  - Drug ineffective [Not Recovered/Not Resolved]
  - Tremor [Unknown]
  - Tonsillitis [Unknown]
  - Serotonin syndrome [Recovered/Resolved]
  - Dizziness [Not Recovered/Not Resolved]
  - Sexual dysfunction [Recovered/Resolved]
  - Chills [Recovered/Resolved]
  - Somnolence [Not Recovered/Not Resolved]
  - Dry mouth [Recovered/Resolved]

NARRATIVE: CASE EVENT DATE: 20170801
